FAERS Safety Report 24815653 (Version 1)
Quarter: 2025Q1

REPORT INFORMATION
  Report Type: Spontaneous
  Country: GB (occurrence: GB)
  Receive Date: 20250107
  Receipt Date: 20250107
  Transmission Date: 20250408
  Serious: Yes (Death, Other)
  Sender: ABBVIE
  Company Number: GB-ABBVIE-6073522

PATIENT
  Age: 84 Year
  Sex: Female

DRUGS (1)
  1. BOTOX [Suspect]
     Active Substance: ONABOTULINUMTOXINA
     Indication: Product used for unknown indication
     Route: 065

REACTIONS (5)
  - Phlebitis [Fatal]
  - Peripheral swelling [Unknown]
  - Brain hypoxia [Unknown]
  - Cerebral ischaemia [Unknown]
  - Swelling face [Unknown]
